FAERS Safety Report 12269114 (Version 4)
Quarter: 2019Q2

REPORT INFORMATION
  Report Type: Report from Study
  Country: FR (occurrence: FR)
  Receive Date: 20160414
  Receipt Date: 20190425
  Transmission Date: 20190711
  Serious: Yes (Other)
  Sender: FDA-Public Use
  Company Number: PHHY2016FR049098

PATIENT
  Sex: Female

DRUGS (1)
  1. GILENYA [Suspect]
     Active Substance: FINGOLIMOD HYDROCHLORIDE
     Indication: RELAPSING-REMITTING MULTIPLE SCLEROSIS
     Dosage: 0.5 MG, QD
     Route: 065
     Dates: start: 20141022, end: 20160810

REACTIONS (7)
  - Muscle spasms [Unknown]
  - Generalised tonic-clonic seizure [Recovered/Resolved]
  - Muscle rigidity [Unknown]
  - Tonic clonic movements [Unknown]
  - Confusional state [Unknown]
  - Loss of consciousness [Unknown]
  - Movement disorder [Unknown]

NARRATIVE: CASE EVENT DATE: 20150225
